FAERS Safety Report 17568978 (Version 2)
Quarter: 2020Q1

REPORT INFORMATION
  Report Type: Report from Study
  Country: DK (occurrence: DK)
  Receive Date: 20200321
  Receipt Date: 20200328
  Transmission Date: 20200409
  Serious: Yes (Life-Threatening, Other)
  Sender: FDA-Public Use
  Company Number: DK-TAKEDA-2020TUS015212

PATIENT
  Sex: Male

DRUGS (6)
  1. OXYCODON [Concomitant]
     Active Substance: OXYCODONE
     Dosage: UNK
  2. CLONIDIN [Concomitant]
     Active Substance: CLONIDINE
     Indication: PAIN MANAGEMENT
     Dosage: 50 MILLIGRAM, BID
     Dates: start: 20190711
  3. VEDOLIZUMAB [Suspect]
     Active Substance: VEDOLIZUMAB
     Indication: CROHN^S DISEASE
     Dosage: UNK
     Route: 042
     Dates: start: 20170831
  4. FENTANYL. [Concomitant]
     Active Substance: FENTANYL
     Indication: PAIN MANAGEMENT
     Dosage: 100 MICROGRAM, Q1HR
     Dates: start: 20161229
  5. AZATHIOPRIN [Concomitant]
     Active Substance: AZATHIOPRINE
     Indication: CROHN^S DISEASE
     Dosage: 100 MILLIGRAM, QD
     Dates: start: 20131113
  6. LOPERAMID [Concomitant]
     Active Substance: LOPERAMIDE
     Indication: CROHN^S DISEASE
     Dosage: UNK
     Dates: start: 20180411

REACTIONS (2)
  - Non-small cell lung cancer metastatic [Not Recovered/Not Resolved]
  - Metastases to spine [Not Recovered/Not Resolved]

NARRATIVE: CASE EVENT DATE: 20191218
